FAERS Safety Report 19426413 (Version 1)
Quarter: 2021Q2

REPORT INFORMATION
  Report Type: Spontaneous
  Country: PL (occurrence: PL)
  Receive Date: 20210617
  Receipt Date: 20210617
  Transmission Date: 20210717
  Serious: Yes (Other)
  Sender: FDA-Public Use
  Company Number: PL-TEVA-2021-PL-1922304

PATIENT
  Age: 34 Year
  Sex: Female

DRUGS (3)
  1. LEVETIRACETAM. [Suspect]
     Active Substance: LEVETIRACETAM
     Indication: JUVENILE MYOCLONIC EPILEPSY
     Dosage: 2000 MILLIGRAM DAILY;
     Route: 065
  2. LACOSAMIDE. [Interacting]
     Active Substance: LACOSAMIDE
     Indication: JUVENILE MYOCLONIC EPILEPSY
     Dosage: 200 MILLIGRAM DAILY;
     Route: 065
  3. LAMOTRIGINE. [Suspect]
     Active Substance: LAMOTRIGINE
     Indication: JUVENILE MYOCLONIC EPILEPSY
     Dosage: 150 MILLIGRAM DAILY;
     Route: 065

REACTIONS (5)
  - Maternal exposure during pregnancy [Unknown]
  - Juvenile myoclonic epilepsy [Recovering/Resolving]
  - Normal newborn [Unknown]
  - Condition aggravated [Recovering/Resolving]
  - Drug interaction [Unknown]
